FAERS Safety Report 6965901-9 (Version None)
Quarter: 2010Q3

REPORT INFORMATION
  Report Type: 
  Country: None (occurrence: None)
  Receive Date: 20100903
  Receipt Date: 20100901
  Transmission Date: 20110219
  Serious: Yes (Other)
  Sender: FDA-Public Use
  Company Number: US-PURDUE-USA-2010-0046384

PATIENT
  Sex: Female

DRUGS (2)
  1. OXYCONTIN [Suspect]
     Indication: BACK PAIN
     Dosage: 80 MG, BID
     Dates: start: 20100827, end: 20100829
  2. OXYCONTIN [Suspect]
     Indication: PAIN IN EXTREMITY

REACTIONS (8)
  - ABDOMINAL DISCOMFORT [None]
  - ARTHRALGIA [None]
  - DELUSION [None]
  - FORMICATION [None]
  - HALLUCINATION [None]
  - MALAISE [None]
  - NAUSEA [None]
  - PRODUCT QUALITY ISSUE [None]
